FAERS Safety Report 9360975 (Version 2)
Quarter: 2013Q3

REPORT INFORMATION
  Report Type: Spontaneous
  Country: US (occurrence: US)
  Receive Date: 20130621
  Receipt Date: 20130812
  Transmission Date: 20140515
  Serious: Yes (Other)
  Sender: FDA-Public Use
  Company Number: US-PFIZER INC-2013183381

PATIENT
  Age: 67 Year
  Sex: Female
  Weight: 72.56 kg

DRUGS (12)
  1. LEVOXYL [Suspect]
     Indication: HYPOTHYROIDISM
     Dosage: 50 UG, 1X/DAY
     Dates: start: 2004, end: 20130508
  2. LEVOXYL [Suspect]
     Dosage: 50 UG, EVERY DAY
     Route: 048
     Dates: start: 20130508, end: 20130715
  3. LISINOPRIL [Suspect]
     Indication: HYPERTENSION
     Dosage: 30 MG, 1X/DAY
  4. LISINOPRIL [Suspect]
     Dosage: 10 MG, EVERY DAY
     Dates: end: 20130618
  5. LEVOTHYROXINE SODIUM [Suspect]
     Indication: HYPOTHYROIDISM
     Dosage: 75 AND 50 UG, DAILY
     Route: 048
     Dates: start: 20130507, end: 20130715
  6. ARMOUR THYROID [Suspect]
     Indication: HYPOTHYROIDISM
     Dosage: 1/2 GRAM, DAILY
     Route: 048
     Dates: start: 20130715, end: 20130729
  7. VITAMIN D [Concomitant]
     Indication: VITAMIN D DECREASED
     Dosage: 2000 IU, 2X/DAY
  8. CALCIUM [Concomitant]
     Indication: OSTEOPENIA
     Dosage: 1000 MG, 1X/DAY
  9. COZAAR [Concomitant]
     Dosage: 50 MG, EVERY DAY
  10. CYTOMEL [Concomitant]
     Dosage: 5 UG, EVERY DAY
  11. ASA [Concomitant]
     Dosage: 325 MG, EVERY DAY
  12. CARTIA [Concomitant]
     Dosage: UNK
     Dates: end: 20130624

REACTIONS (10)
  - Angioedema [Not Recovered/Not Resolved]
  - Eyelid oedema [Not Recovered/Not Resolved]
  - Nausea [Not Recovered/Not Resolved]
  - Fatigue [Unknown]
  - Chills [Not Recovered/Not Resolved]
  - Abdominal pain [Not Recovered/Not Resolved]
  - Urticaria [Not Recovered/Not Resolved]
  - Swelling face [Not Recovered/Not Resolved]
  - Arthralgia [Unknown]
  - Pruritus [Unknown]
